FAERS Safety Report 7555988-7 (Version None)
Quarter: 2011Q2

REPORT INFORMATION
  Report Type: 
  Country: None (occurrence: None)
  Receive Date: 20110620
  Receipt Date: 20110613
  Transmission Date: 20111010
  Serious: Yes (Death)
  Sender: FDA-Public Use
  Company Number: DE-BRISTOL-MYERS SQUIBB COMPANY-14969687

PATIENT
  Age: 70 Year
  Sex: Male

DRUGS (7)
  1. DIGITOXIN TAB [Concomitant]
     Dosage: 1 DF = 0.1 UNIT NOS
  2. NEBIVOLOL HCL [Concomitant]
     Dates: start: 20100131
  3. PLACEBO [Suspect]
     Indication: THROMBOSIS PROPHYLAXIS
     Route: 048
     Dates: start: 20090825, end: 20100205
  4. ASPIRIN [Concomitant]
  5. SIMVASTATIN [Concomitant]
  6. WARFARIN SODIUM [Suspect]
     Indication: THROMBOSIS PROPHYLAXIS
     Route: 048
     Dates: start: 20090825, end: 20100205
  7. PERINDOPRIL ERBUMINE [Concomitant]

REACTIONS (1)
  - VENTRICULAR ARRHYTHMIA [None]
